FAERS Safety Report 17300040 (Version 1)
Quarter: 2020Q1

REPORT INFORMATION
  Report Type: Spontaneous
  Country: US (occurrence: US)
  Receive Date: 20200122
  Receipt Date: 20200122
  Transmission Date: 20200409
  Serious: No
  Sender: FDA-Public Use
  Company Number: US-ALLERGAN-1924340US

PATIENT
  Age: 93 Year
  Sex: Male

DRUGS (3)
  1. RESTASIS [Suspect]
     Active Substance: CYCLOSPORINE
     Indication: DRY EYE
     Dosage: 2 GTT, BID
     Route: 047
     Dates: start: 201901, end: 201906
  2. OTC P/F EYE DROP [Concomitant]
     Indication: DRY EYE
     Dosage: UNK, PRN
     Route: 047
  3. HEART MEDICATION UNSPECIFIED [Concomitant]
     Indication: CARDIAC DISORDER
     Dosage: UNK, QD
     Route: 048

REACTIONS (3)
  - Eye irritation [Recovering/Resolving]
  - Vision blurred [Unknown]
  - Wrong technique in product usage process [Unknown]

NARRATIVE: CASE EVENT DATE: 201901
